FAERS Safety Report 8387559-7 (Version None)
Quarter: 2012Q2

REPORT INFORMATION
  Report Type: 
  Country: None (occurrence: None)
  Receive Date: 20120525
  Receipt Date: 20120522
  Transmission Date: 20120825
  Serious: Yes (Hospitalization, Other)
  Sender: FDA-Public Use
  Company Number: PHEH2011US02369

PATIENT
  Sex: Female

DRUGS (5)
  1. DANTRIUM [Concomitant]
     Dosage: UNK UKN, UNK
  2. OXYBUTYNIN [Concomitant]
     Dosage: UNK UKN, UNK
  3. BACLOFEN [Concomitant]
     Dosage: UNK UKN, UNK
  4. CITALOPRAM HYDROBROMIDE [Concomitant]
     Dosage: UNK UKN, UNK
  5. GILENYA [Suspect]
     Indication: MULTIPLE SCLEROSIS
     Dosage: 0.5 MG, QD
     Route: 048
     Dates: start: 20110818, end: 20110818

REACTIONS (6)
  - CHEST PAIN [None]
  - HEART RATE DECREASED [None]
  - DYSPNOEA [None]
  - FEELING ABNORMAL [None]
  - ANXIETY [None]
  - DIZZINESS [None]
